FAERS Safety Report 7894331-0 (Version None)
Quarter: 2011Q4

REPORT INFORMATION
  Report Type: 
  Country: None (occurrence: None)
  Receive Date: 20111104
  Receipt Date: 20111026
  Transmission Date: 20120403
  Serious: Yes (Hospitalization, Disabling)
  Sender: FDA-Public Use
  Company Number: US-MERCK-1106USA01811

PATIENT
  Sex: Female

DRUGS (2)
  1. FOSAMAX [Suspect]
     Indication: OSTEOPENIA
     Route: 048
     Dates: start: 19970101, end: 20100101
  2. CALCIUM (UNSPECIFIED) AND VITAMIN D (UNSPECIFIED) [Concomitant]
     Route: 065
     Dates: start: 19970101

REACTIONS (11)
  - TEETH BRITTLE [None]
  - IMPAIRED HEALING [None]
  - NEOPLASM MALIGNANT [None]
  - FEMUR FRACTURE [None]
  - LOW TURNOVER OSTEOPATHY [None]
  - WRIST FRACTURE [None]
  - TOOTH FRACTURE [None]
  - VITAMIN D DEFICIENCY [None]
  - MEDICAL DEVICE COMPLICATION [None]
  - TOXICITY TO VARIOUS AGENTS [None]
  - ARTHRALGIA [None]
